FAERS Safety Report 6616912-4 (Version None)
Quarter: 2010Q1

REPORT INFORMATION
  Report Type: 
  Country: None (occurrence: None)
  Receive Date: 20100301
  Receipt Date: 20100218
  Transmission Date: 20100710
  Serious: Yes (Death)
  Sender: FDA-Public Use
  Company Number: 007370

PATIENT

DRUGS (1)
  1. LEVETIRACETAM [Suspect]
     Dosage: (1000 MG/DAY TO 3000 MG/DAY BETWEEN JAN 2000 TO MAR-2002)
     Dates: start: 20000101, end: 20020301

REACTIONS (3)
  - FATIGUE [None]
  - MOOD ALTERED [None]
  - SEDATION [None]
